FAERS Safety Report 4636845-2 (Version None)
Quarter: 2005Q2

REPORT INFORMATION
  Report Type: 
  Country: None (occurrence: None)
  Receive Date: 20050414
  Receipt Date: 20050404
  Transmission Date: 20051028
  Serious: Yes (Other)
  Sender: FDA-Public Use
  Company Number: 2004121855

PATIENT
  Age: 66 Year
  Sex: Female
  Weight: 60.782 kg

DRUGS (16)
  1. CELEBREX [Suspect]
     Indication: PAIN
     Dosage: 200 MG (200 MG, 1 IN 1 D); ORAL
     Route: 048
     Dates: start: 20031001
  2. BENADRYL [Suspect]
     Indication: INITIAL INSOMNIA
  3. TEMAZEPAM [Concomitant]
  4. CHONDROITIN/GLUCOSAMINE [Concomitant]
  5. TOCOPHEROL CONCENTRATE CAP [Concomitant]
  6. ASCORBIC ACID [Concomitant]
  7. FISH OIL [Concomitant]
  8. MULTIVITAMINS (ASCORBIC ACID, ERGOCALCIFEROL, FOLIC ACID, NICTINAMIDE, [Concomitant]
  9. ALL OTHER THERAPEUTIC PRODUCTS [Concomitant]
  10. ACETYL SALICYLIC ACID USP BAT [Concomitant]
  11. CALCIUM CARBONATE [Concomitant]
  12. FLUTICASONE PROPIONATE [Concomitant]
  13. LORATADINE [Concomitant]
  14. ALENDRONATE SODIUM [Concomitant]
  15. GLUCOSAMINE [Concomitant]
  16. TEMAZEPAM [Concomitant]

REACTIONS (8)
  - ATRIAL FIBRILLATION [None]
  - BLOOD CHOLESTEROL INCREASED [None]
  - CHEST X-RAY ABNORMAL [None]
  - DRUG INEFFECTIVE [None]
  - DRY EYE [None]
  - HEART RATE IRREGULAR [None]
  - PALPITATIONS [None]
  - POST PROCEDURAL PAIN [None]
